FAERS Safety Report 4668994-7 (Version None)
Quarter: 2005Q2

REPORT INFORMATION
  Report Type: 
  Country: None (occurrence: None)
  Receive Date: 20050523
  Receipt Date: 20050513
  Transmission Date: 20051028
  Serious: Yes (Hospitalization)
  Sender: FDA-Public Use
  Company Number: 404339

PATIENT
  Age: 75 Year
  Sex: Female

DRUGS (9)
  1. CARVEDILOL [Suspect]
     Indication: DRUG USE FOR UNKNOWN INDICATION
     Dosage: 6.25MG TWICE PER DAY
     Dates: start: 20040721, end: 20040724
  2. NATEGLINIDE [Suspect]
     Indication: GLUCOSE TOLERANCE IMPAIRED
     Route: 048
     Dates: start: 20021008
  3. VALSARTAN [Suspect]
     Indication: CARDIOVASCULAR DISORDER
     Route: 048
     Dates: start: 20021008
  4. AMIODARONE HCL [Concomitant]
  5. SOTALOL HCL [Concomitant]
     Dates: end: 20040708
  6. ASPIRIN [Concomitant]
  7. VERAPAMIL [Concomitant]
     Dates: start: 20040708, end: 20040724
  8. DIGOXIN [Concomitant]
     Dates: start: 20040708
  9. OMEPRAZOLE [Concomitant]
     Dates: start: 20040708, end: 20040726

REACTIONS (6)
  - ATRIAL FIBRILLATION [None]
  - BRADYCARDIA [None]
  - LEFT VENTRICULAR FAILURE [None]
  - MITRAL VALVE INCOMPETENCE [None]
  - PULMONARY OEDEMA [None]
  - TRICUSPID VALVE INCOMPETENCE [None]
